FAERS Safety Report 8914431 (Version 1)
Quarter: 2012Q4

REPORT INFORMATION
  Report Type: 
  Country: HU (occurrence: HU)
  Receive Date: 20121117
  Receipt Date: 20121117
  Transmission Date: 20130627
  Serious: Yes (Death, Other)
  Sender: FDA-Public Use
  Company Number: HU-AMGEN-HUNSP2012073308

PATIENT

DRUGS (5)
  1. NPLATE [Suspect]
     Indication: LANGERHANS^ CELL HISTIOCYTOSIS
  2. CYTOSINE ARABINOSIDE [Concomitant]
  3. 2-CDA [Concomitant]
  4. CYCLOSPORIN A [Concomitant]
  5. THALIDOMIDE [Concomitant]

REACTIONS (3)
  - Death [Fatal]
  - Splenectomy [Unknown]
  - Disease progression [Unknown]
